FAERS Safety Report 7399330-3 (Version None)
Quarter: 2011Q2

REPORT INFORMATION
  Report Type: 
  Country: None (occurrence: None)
  Receive Date: 20110407
  Receipt Date: 20110404
  Transmission Date: 20111010
  Serious: Yes (Other)
  Sender: FDA-Public Use
  Company Number: FR-PFIZER INC-2011074985

PATIENT
  Age: 5 Year
  Sex: Male

DRUGS (1)
  1. VFEND [Suspect]
     Indication: BRONCHOPULMONARY ASPERGILLOSIS
     Dosage: 160 MG, 2X/DAY
     Route: 048
     Dates: start: 20101201

REACTIONS (2)
  - CHEILITIS [None]
  - POLYMORPHIC LIGHT ERUPTION [None]
